FAERS Safety Report 10038651 (Version 1)
Quarter: 2014Q1

REPORT INFORMATION
  Report Type: Spontaneous
  Country: US (occurrence: US)
  Receive Date: 20140326
  Receipt Date: 20140326
  Transmission Date: 20141002
  Serious: Yes (Other)
  Sender: FDA-Public Use
  Company Number: US-CUBIST PHARMACEUTICAL, INC.-2014CBST000432

PATIENT
  Sex: 0

DRUGS (1)
  1. CUBICIN [Suspect]
     Indication: INFECTION
     Dosage: UNK, UNK (10 ML)
     Route: 042
     Dates: start: 20130308, end: 20130313

REACTIONS (3)
  - Pain in extremity [Not Recovered/Not Resolved]
  - Foreign body [Not Recovered/Not Resolved]
  - Product quality issue [Unknown]
